FAERS Safety Report 24227138 (Version 1)
Quarter: 2024Q3

REPORT INFORMATION
  Report Type: Spontaneous
  Country: TW (occurrence: TW)
  Receive Date: 20240820
  Receipt Date: 20240820
  Transmission Date: 20241016
  Serious: Yes (Hospitalization)
  Sender: PANACEA BIOTEC
  Company Number: TW-PBT-009637

PATIENT
  Age: 81 Year
  Sex: Male

DRUGS (2)
  1. PRASUGREL [Suspect]
     Active Substance: PRASUGREL
     Indication: Vascular stent thrombosis
     Route: 065
  2. ASPIRIN [Concomitant]
     Active Substance: ASPIRIN
     Indication: Vascular stent thrombosis
     Route: 065

REACTIONS (1)
  - Pyrexia [Recovered/Resolved]
